FAERS Safety Report 17372792 (Version 2)
Quarter: 2020Q2

REPORT INFORMATION
  Report Type: Report from Study
  Country: US (occurrence: US)
  Receive Date: 20200205
  Receipt Date: 20200512
  Transmission Date: 20200713
  Serious: Yes (Other)
  Sender: FDA-Public Use
  Company Number: US-ROCHE-2518240

PATIENT
  Sex: Male
  Weight: 90.8 kg

DRUGS (2)
  1. ESBRIET [Suspect]
     Active Substance: PIRFENIDONE
     Indication: IDIOPATHIC PULMONARY FIBROSIS
     Route: 048
  2. FLOVENT HFA [Concomitant]
     Active Substance: FLUTICASONE PROPIONATE
     Route: 065
     Dates: start: 202004

REACTIONS (6)
  - Sinus disorder [Unknown]
  - Depression [Unknown]
  - Dizziness [Unknown]
  - Suicidal ideation [Unknown]
  - Gastric disorder [Unknown]
  - Asthenia [Unknown]
